FAERS Safety Report 6765528-8 (Version None)
Quarter: 2010Q2

REPORT INFORMATION
  Report Type: 
  Country: None (occurrence: None)
  Receive Date: 20100611
  Receipt Date: 20100601
  Transmission Date: 20101027
  Serious: Yes (Hospitalization)
  Sender: FDA-Public Use
  Company Number: JP-JNJFOC-20100404768

PATIENT
  Sex: Female
  Weight: 40 kg

DRUGS (3)
  1. REMICADE [Suspect]
     Indication: CROHN'S DISEASE
     Route: 042
  2. REMICADE [Suspect]
     Route: 042
  3. ELENTAL [Concomitant]
     Route: 048

REACTIONS (2)
  - NAUSEA [None]
  - WEIGHT DECREASED [None]
